FAERS Safety Report 10227523 (Version 1)
Quarter: 2014Q2

REPORT INFORMATION
  Report Type: Spontaneous
  Country: US (occurrence: US)
  Receive Date: 20140610
  Receipt Date: 20140610
  Transmission Date: 20141212
  Serious: No
  Sender: FDA-Public Use
  Company Number: US-VIIV HEALTHCARE LIMITED-A1070812A

PATIENT
  Age: 41 Year
  Sex: Male
  Weight: 80 kg

DRUGS (12)
  1. TIVICAY [Suspect]
     Indication: HIV INFECTION
     Dosage: 50MG UNKNOWN
     Route: 048
     Dates: start: 20140324, end: 20140417
  2. EPZICOM [Suspect]
     Indication: PRODUCT USED FOR UNKNOWN INDICATION
     Route: 048
     Dates: start: 20101006
  3. TRIZIVIR [Suspect]
     Indication: PRODUCT USED FOR UNKNOWN INDICATION
     Route: 065
     Dates: start: 20031007, end: 20031110
  4. KALETRA [Suspect]
     Indication: PRODUCT USED FOR UNKNOWN INDICATION
     Route: 065
     Dates: start: 20040316, end: 20140324
  5. PRAVASTATIN [Concomitant]
  6. FENOFIBRATE [Concomitant]
  7. OMEPRAZOLE [Concomitant]
  8. VALTREX [Concomitant]
  9. TESTOSTERONE [Concomitant]
  10. HYOSCYAMINE SULFATE [Concomitant]
  11. VITAMIN D [Concomitant]
  12. FISH OIL [Concomitant]

REACTIONS (3)
  - Liver function test abnormal [Not Recovered/Not Resolved]
  - Lipids increased [Recovering/Resolving]
  - Viral load [Unknown]
